FAERS Safety Report 23895338 (Version 1)
Quarter: 2024Q2

REPORT INFORMATION
  Report Type: Spontaneous
  Country: US (occurrence: US)
  Receive Date: 20240524
  Receipt Date: 20240524
  Transmission Date: 20240715
  Serious: No
  Sender: FDA-Public Use
  Company Number: US-ELI_LILLY_AND_COMPANY-US202405008242

PATIENT
  Age: 37 Year
  Sex: Female

DRUGS (39)
  1. ZEPBOUND [Suspect]
     Active Substance: TIRZEPATIDE
     Indication: Weight control
     Dosage: 2.5 MG, UNKNOWN
     Route: 065
     Dates: start: 202401
  2. ZEPBOUND [Suspect]
     Active Substance: TIRZEPATIDE
     Indication: Weight control
     Dosage: 2.5 MG, UNKNOWN
     Route: 065
     Dates: start: 202401
  3. ZEPBOUND [Suspect]
     Active Substance: TIRZEPATIDE
     Indication: Weight control
     Dosage: 2.5 MG, UNKNOWN
     Route: 065
     Dates: start: 202401
  4. ZEPBOUND [Suspect]
     Active Substance: TIRZEPATIDE
     Indication: Weight control
     Dosage: 2.5 MG, UNKNOWN
     Route: 065
     Dates: start: 202401
  5. ZEPBOUND [Suspect]
     Active Substance: TIRZEPATIDE
     Indication: Hypertension
  6. ZEPBOUND [Suspect]
     Active Substance: TIRZEPATIDE
     Indication: Hypertension
  7. ZEPBOUND [Suspect]
     Active Substance: TIRZEPATIDE
     Indication: Hypertension
  8. ZEPBOUND [Suspect]
     Active Substance: TIRZEPATIDE
     Indication: Hypertension
  9. ZEPBOUND [Suspect]
     Active Substance: TIRZEPATIDE
     Indication: Body mass index
  10. ZEPBOUND [Suspect]
     Active Substance: TIRZEPATIDE
     Indication: Body mass index
  11. ZEPBOUND [Suspect]
     Active Substance: TIRZEPATIDE
     Indication: Body mass index
  12. ZEPBOUND [Suspect]
     Active Substance: TIRZEPATIDE
     Indication: Body mass index
  13. ZEPBOUND [Suspect]
     Active Substance: TIRZEPATIDE
     Indication: Weight control
     Dosage: 5 MG, UNKNOWN
     Route: 065
  14. ZEPBOUND [Suspect]
     Active Substance: TIRZEPATIDE
     Indication: Weight control
     Dosage: 5 MG, UNKNOWN
     Route: 065
  15. ZEPBOUND [Suspect]
     Active Substance: TIRZEPATIDE
     Indication: Weight control
     Dosage: 5 MG, UNKNOWN
     Route: 065
  16. ZEPBOUND [Suspect]
     Active Substance: TIRZEPATIDE
     Indication: Weight control
     Dosage: 5 MG, UNKNOWN
     Route: 065
  17. ZEPBOUND [Suspect]
     Active Substance: TIRZEPATIDE
     Indication: Hypertension
  18. ZEPBOUND [Suspect]
     Active Substance: TIRZEPATIDE
     Indication: Hypertension
  19. ZEPBOUND [Suspect]
     Active Substance: TIRZEPATIDE
     Indication: Hypertension
  20. ZEPBOUND [Suspect]
     Active Substance: TIRZEPATIDE
     Indication: Hypertension
  21. ZEPBOUND [Suspect]
     Active Substance: TIRZEPATIDE
     Indication: Body mass index increased
  22. ZEPBOUND [Suspect]
     Active Substance: TIRZEPATIDE
     Indication: Body mass index increased
  23. ZEPBOUND [Suspect]
     Active Substance: TIRZEPATIDE
     Indication: Body mass index increased
  24. ZEPBOUND [Suspect]
     Active Substance: TIRZEPATIDE
     Indication: Body mass index increased
  25. ZEPBOUND [Suspect]
     Active Substance: TIRZEPATIDE
     Indication: Weight control
     Dosage: 7.5 MG, UNKNOWN
     Route: 065
  26. ZEPBOUND [Suspect]
     Active Substance: TIRZEPATIDE
     Indication: Weight control
     Dosage: 7.5 MG, UNKNOWN
     Route: 065
  27. ZEPBOUND [Suspect]
     Active Substance: TIRZEPATIDE
     Indication: Weight control
     Dosage: 7.5 MG, UNKNOWN
     Route: 065
  28. ZEPBOUND [Suspect]
     Active Substance: TIRZEPATIDE
     Indication: Weight control
     Dosage: 7.5 MG, UNKNOWN
     Route: 065
  29. ZEPBOUND [Suspect]
     Active Substance: TIRZEPATIDE
     Indication: Weight control
     Dosage: 7.5 MG, UNKNOWN
     Route: 065
  30. ZEPBOUND [Suspect]
     Active Substance: TIRZEPATIDE
     Indication: Hypertension
     Dosage: 7.5 MG, UNKNOWN
     Route: 065
  31. ZEPBOUND [Suspect]
     Active Substance: TIRZEPATIDE
     Indication: Hypertension
     Dosage: 7.5 MG, UNKNOWN
     Route: 065
  32. ZEPBOUND [Suspect]
     Active Substance: TIRZEPATIDE
     Indication: Hypertension
     Dosage: 7.5 MG, UNKNOWN
     Route: 065
  33. ZEPBOUND [Suspect]
     Active Substance: TIRZEPATIDE
     Indication: Hypertension
     Dosage: 7.5 MG, UNKNOWN
     Route: 065
  34. ZEPBOUND [Suspect]
     Active Substance: TIRZEPATIDE
     Indication: Hypertension
     Dosage: 7.5 MG, UNKNOWN
     Route: 065
  35. ZEPBOUND [Suspect]
     Active Substance: TIRZEPATIDE
     Indication: Body mass index increased
  36. ZEPBOUND [Suspect]
     Active Substance: TIRZEPATIDE
     Indication: Body mass index increased
  37. ZEPBOUND [Suspect]
     Active Substance: TIRZEPATIDE
     Indication: Body mass index increased
  38. ZEPBOUND [Suspect]
     Active Substance: TIRZEPATIDE
     Indication: Body mass index increased
  39. ZEPBOUND [Suspect]
     Active Substance: TIRZEPATIDE
     Indication: Body mass index increased

REACTIONS (3)
  - Incorrect dose administered [Unknown]
  - Injection site erythema [Unknown]
  - Injection site bruising [Unknown]
